FAERS Safety Report 12727782 (Version 2)
Quarter: 2017Q1

REPORT INFORMATION
  Report Type: Spontaneous
  Country: JP (occurrence: JP)
  Receive Date: 20160909
  Receipt Date: 20170208
  Transmission Date: 20170428
  Serious: Yes (Disabling, Other)
  Sender: FDA-Public Use
  Company Number: JP-BAXALTA-2016BXJ005382

PATIENT
  Age: 10 Month
  Sex: Male
  Weight: 8.9 kg

DRUGS (13)
  1. TRANSAMIN [Concomitant]
     Active Substance: TRANEXAMIC ACID
     Dosage: 100 MG, 3X A DAY
     Route: 048
     Dates: start: 20160608, end: 20160621
  2. ADVATE [Suspect]
     Active Substance: ANTIHEMOPHILIC FACTOR, HUMAN RECOMBINANT
     Dosage: 250 IU, 1X A DAY
     Route: 042
     Dates: start: 20160530, end: 20160531
  3. ADVATE [Suspect]
     Active Substance: ANTIHEMOPHILIC FACTOR, HUMAN RECOMBINANT
     Dosage: UNK
     Dates: start: 20160528, end: 20160529
  4. ADONA                              /00056903/ [Concomitant]
     Active Substance: CARBAZOCHROME SODIUM SULFONATE
     Dosage: 6.66 MG, 3X A DAY
     Route: 048
     Dates: start: 20160608, end: 20160621
  5. TRANSAMIN [Concomitant]
     Active Substance: TRANEXAMIC ACID
     Indication: PRODUCT USED FOR UNKNOWN INDICATION
     Dosage: 100 MG, 3X A DAY
     Route: 048
     Dates: start: 20160527, end: 20160602
  6. KETOPROFEN. [Concomitant]
     Active Substance: KETOPROFEN
     Indication: PRODUCT USED FOR UNKNOWN INDICATION
     Dosage: 3 DOSAGE FORMS, UNK
     Route: 062
     Dates: start: 20160608, end: 20160608
  7. ADVATE [Suspect]
     Active Substance: ANTIHEMOPHILIC FACTOR, HUMAN RECOMBINANT
     Dosage: 250 IU, 2X A DAY
     Route: 042
     Dates: start: 20160528, end: 20160529
  8. ADVATE [Suspect]
     Active Substance: ANTIHEMOPHILIC FACTOR, HUMAN RECOMBINANT
     Dosage: 250 IU, 1X A WEEK
     Route: 042
     Dates: start: 20160602, end: 20160622
  9. ADONA                              /00056903/ [Concomitant]
     Active Substance: CARBAZOCHROME SODIUM SULFONATE
     Dosage: 6.66 MG, 3X A DAY
     Route: 048
     Dates: start: 20160629, end: 20160810
  10. ADVATE [Suspect]
     Active Substance: ANTIHEMOPHILIC FACTOR, HUMAN RECOMBINANT
     Indication: FACTOR VIII DEFICIENCY
     Dosage: 250 IU, 1X A DAY
     Route: 042
     Dates: start: 20160527, end: 20160527
  11. TRANSAMIN [Concomitant]
     Active Substance: TRANEXAMIC ACID
     Dosage: 100 MG, 3X A DAY
     Route: 048
     Dates: start: 20160629, end: 20160810
  12. ADONA                              /00056903/ [Concomitant]
     Active Substance: CARBAZOCHROME SODIUM SULFONATE
     Indication: PRODUCT USED FOR UNKNOWN INDICATION
     Dosage: 6.66 MG, 3X A DAY
     Route: 048
     Dates: start: 20160527, end: 20160602
  13. ADVATE [Suspect]
     Active Substance: ANTIHEMOPHILIC FACTOR, HUMAN RECOMBINANT
     Dosage: 250 IU, 1X A DAY
     Route: 042
     Dates: start: 20160617, end: 20160617

REACTIONS (2)
  - Factor VIII inhibition [Not Recovered/Not Resolved]
  - Muscle haemorrhage [Recovered/Resolved]

NARRATIVE: CASE EVENT DATE: 20160615
